FAERS Safety Report 25881154 (Version 1)
Quarter: 2025Q4

REPORT INFORMATION
  Report Type: Spontaneous
  Country: RU (occurrence: RU)
  Receive Date: 20251004
  Receipt Date: 20251004
  Transmission Date: 20260118
  Serious: Yes (Life-Threatening, Hospitalization)
  Sender: ACCORD
  Company Number: RU-FreseniusKabi-FK202418713

PATIENT
  Age: 65 Year
  Sex: Female

DRUGS (3)
  1. GEMCITABINE [Suspect]
     Active Substance: GEMCITABINE
     Indication: Ovarian cancer stage II
  2. MITOMYCIN [Suspect]
     Active Substance: MITOMYCIN
     Indication: Ovarian cancer stage II
  3. BEVACIZUMAB [Suspect]
     Active Substance: BEVACIZUMAB
     Indication: Ovarian cancer stage II

REACTIONS (2)
  - Thrombotic microangiopathy [Recovering/Resolving]
  - Metabolic acidosis [Recovering/Resolving]
